FAERS Safety Report 8131698-2 (Version None)
Quarter: 2012Q1

REPORT INFORMATION
  Report Type: 
  Country: None (occurrence: None)
  Receive Date: 20120208
  Receipt Date: 20041014
  Transmission Date: 20120608
  Serious: No
  Sender: FDA-Public Use
  Company Number: HYBI20110003

PATIENT
  Age: 30 Year
  Sex: Male

DRUGS (4)
  1. PENICILLIN [Suspect]
     Indication: PRODUCT USED FOR UNKNOWN INDICATION
  2. CLINDAMYCIN [Concomitant]
  3. HYDROCODONE/ACETAMINOPHEN 5MG/500MG (PARACETAMOL, HYDROCODONE BITARTRA [Suspect]
     Indication: ANALGESIC THERAPY
     Dosage: 1 TAB Q4-6H PRN PAIN, ORAL
     Route: 048
     Dates: start: 20041001
  4. METRONIDAZOLE [Concomitant]

REACTIONS (6)
  - DECREASED APPETITE [None]
  - NAUSEA [None]
  - RASH GENERALISED [None]
  - DYSPHAGIA [None]
  - HAEMATOCHEZIA [None]
  - ABDOMINAL DISTENSION [None]
